FAERS Safety Report 6201043-8 (Version None)
Quarter: 2009Q2

REPORT INFORMATION
  Report Type: 
  Country: None (occurrence: None)
  Receive Date: 20090526
  Receipt Date: 20090515
  Transmission Date: 20091009
  Serious: Yes (Other)
  Sender: FDA-Public Use
  Company Number: GR-BRISTOL-MYERS SQUIBB COMPANY-14623003

PATIENT
  Age: 76 Year
  Sex: Male

DRUGS (2)
  1. HYDROXYCARBAMIDE [Suspect]
     Indication: POLYCYTHAEMIA VERA
     Dosage: 1 DOSAGE FORM = 714 MG
  2. ANAGRELIDE HCL [Suspect]
     Indication: POLYCYTHAEMIA VERA
     Dosage: 1DF=MEAN DAILY DOSE 0.64MG

REACTIONS (3)
  - ANGINA PECTORIS [None]
  - DRUG RESISTANCE [None]
  - GENE MUTATION IDENTIFICATION TEST POSITIVE [None]
